FAERS Safety Report 13202532 (Version 3)
Quarter: 2017Q2

REPORT INFORMATION
  Report Type: Spontaneous
  Country: US (occurrence: US)
  Receive Date: 20170209
  Receipt Date: 20170419
  Transmission Date: 20170830
  Serious: No
  Sender: FDA-Public Use
  Company Number: US-PFIZER INC-2017055032

PATIENT
  Age: 1 Year
  Sex: Male

DRUGS (6)
  1. GENOTROPIN MQ [Suspect]
     Active Substance: SOMATROPIN
     Indication: GROWTH HORMONE DEFICIENCY
     Dosage: 0.4 MG, 1X/DAY PER NIGHT
     Route: 058
     Dates: start: 20160521
  2. GENOTROPIN MQ [Suspect]
     Active Substance: SOMATROPIN
     Indication: PRADER-WILLI SYNDROME
     Dosage: 0.6 MG, DAILY (AT BEDTIME)
     Route: 058
     Dates: start: 20161104
  3. CARNITOR [Concomitant]
     Active Substance: LEVOCARNITINE
     Dosage: 4.5 ML, DAILY
     Route: 048
     Dates: start: 20161104
  4. CARNITOR [Concomitant]
     Active Substance: LEVOCARNITINE
     Dosage: 3 ML, DAILY
     Route: 048
     Dates: start: 20160521
  5. CARNITOR [Concomitant]
     Active Substance: LEVOCARNITINE
     Dosage: 300 MG, DAILY
     Route: 048
  6. GENOTROPIN MQ [Suspect]
     Active Substance: SOMATROPIN
     Dosage: 0.6 MG, DAILY (PER DAY X 7 DAYS PER WEEK)
     Dates: start: 20151226

REACTIONS (1)
  - Malaise [Unknown]
